FAERS Safety Report 9697373 (Version 9)
Quarter: 2016Q1

REPORT INFORMATION
  Report Type: Report from Study
  Country: CA (occurrence: CA)
  Receive Date: 20131120
  Receipt Date: 20160114
  Transmission Date: 20160526
  Serious: Yes (Hospitalization, Other)
  Sender: FDA-Public Use
  Company Number: CA-ROCHE-1240681

PATIENT
  Age: 69 Year
  Sex: Female
  Weight: 95.3 kg

DRUGS (13)
  1. ADVAIR HFA [Concomitant]
     Active Substance: FLUTICASONE PROPIONATE\SALMETEROL XINAFOATE
  2. PREDNISONE. [Suspect]
     Active Substance: PREDNISONE
     Indication: PRODUCT USED FOR UNKNOWN INDICATION
     Dosage: DAILY
     Route: 048
  3. PREDNISONE. [Suspect]
     Active Substance: PREDNISONE
     Dosage: DAILY
     Route: 048
     Dates: start: 201410
  4. MURO 128 [Concomitant]
     Active Substance: SODIUM CHLORIDE
  5. RITUXAN [Suspect]
     Active Substance: RITUXIMAB
     Dosage: LAST PREVIOUS DOSE
     Route: 042
     Dates: start: 20131220
  6. SALINE RINSE [Concomitant]
  7. PAXIL (CANADA) [Concomitant]
  8. ATROVENT [Concomitant]
     Active Substance: IPRATROPIUM BROMIDE
  9. METHYLPREDNISOLONE. [Concomitant]
     Active Substance: METHYLPREDNISOLONE
     Route: 042
     Dates: start: 20130624
  10. RITUXAN [Suspect]
     Active Substance: RITUXIMAB
     Indication: GRANULOMATOSIS WITH POLYANGIITIS
     Dosage: DAY 1, 15
     Route: 042
     Dates: start: 20130610
  11. COVERSYL PLUS [Concomitant]
     Active Substance: INDAPAMIDE\PERINDOPRIL
     Dosage: DOSE REDUCED 8MG/2.5MG DAILY
     Route: 065
  12. DIPHENHYDRAMINE HCL [Concomitant]
     Active Substance: DIPHENHYDRAMINE HYDROCHLORIDE
     Route: 042
     Dates: start: 20130624
  13. ACETAMINOPHEN. [Concomitant]
     Active Substance: ACETAMINOPHEN
     Route: 048
     Dates: start: 20130624

REACTIONS (23)
  - Cystitis [Unknown]
  - Weight increased [Unknown]
  - Nasal odour [Recovering/Resolving]
  - Sinus headache [Unknown]
  - Infusion related reaction [Recovered/Resolved]
  - Vasculitis [Unknown]
  - Polyp [Unknown]
  - Granulomatosis with polyangiitis [Unknown]
  - Blood pressure increased [Unknown]
  - Parosmia [Not Recovered/Not Resolved]
  - Thrombosis [Not Recovered/Not Resolved]
  - Functional gastrointestinal disorder [Not Recovered/Not Resolved]
  - Sinus congestion [Not Recovered/Not Resolved]
  - Granulomatosis with polyangiitis [Not Recovered/Not Resolved]
  - Eye infection [Unknown]
  - Urinary tract infection [Not Recovered/Not Resolved]
  - Hypertension [Unknown]
  - Anxiety [Unknown]
  - Eye pain [Recovered/Resolved]
  - Bladder pain [Not Recovered/Not Resolved]
  - Cough [Unknown]
  - Diabetes mellitus inadequate control [Unknown]
  - Sinusitis [Unknown]

NARRATIVE: CASE EVENT DATE: 20130618
